FAERS Safety Report 8400874-3 (Version None)
Quarter: 2012Q2

REPORT INFORMATION
  Report Type: 
  Country: None (occurrence: None)
  Receive Date: 20120601
  Receipt Date: 20090107
  Transmission Date: 20120825
  Serious: Yes (Hospitalization, Other)
  Sender: FDA-Public Use
  Company Number: JP-BRISTOL-MYERS SQUIBB COMPANY-14456008

PATIENT
  Age: 30 Year
  Sex: Male
  Weight: 56 kg

DRUGS (5)
  1. ABILIFY [Suspect]
     Indication: SCHIZOPHRENIA
     Dosage: 26SEP08-02OCT08(24MG);03OCT08-09OCT08(30MG);10OCT08-14OCT08(42MG).
     Route: 048
     Dates: start: 20080926, end: 20081014
  2. LEVOTOMIN [Concomitant]
  3. ZYPREXA [Concomitant]
     Dates: start: 20081014
  4. RISPERDAL [Concomitant]
     Dates: end: 20081002
  5. AKINETON [Concomitant]

REACTIONS (6)
  - SUICIDAL IDEATION [None]
  - DECREASED APPETITE [None]
  - DELUSION [None]
  - OVERDOSE [None]
  - HALLUCINATION, AUDITORY [None]
  - RESTLESSNESS [None]
